FAERS Safety Report 24657344 (Version 1)
Quarter: 2024Q4

REPORT INFORMATION
  Report Type: Spontaneous
  Country: US (occurrence: US)
  Receive Date: 20241125
  Receipt Date: 20241125
  Transmission Date: 20250115
  Serious: No
  Sender: AMGEN
  Company Number: US-AMGEN-USASP2024226060

PATIENT

DRUGS (3)
  1. IMDELLTRA [Suspect]
     Active Substance: TARLATAMAB-DLLE
     Indication: Product used for unknown indication
     Dosage: UNK, FIRST DOSE
     Route: 065
     Dates: start: 202408, end: 202408
  2. IMDELLTRA [Suspect]
     Active Substance: TARLATAMAB-DLLE
     Dosage: UNK, SECOND DOSE
     Route: 065
     Dates: start: 2024, end: 2024
  3. IMDELLTRA [Suspect]
     Active Substance: TARLATAMAB-DLLE
     Dosage: UNK UNK, Q2WK
     Route: 065
     Dates: start: 2024

REACTIONS (2)
  - Dysgeusia [Not Recovered/Not Resolved]
  - Lung infiltration [Unknown]

NARRATIVE: CASE EVENT DATE: 20240801
